FAERS Safety Report 17649961 (Version 1)
Quarter: 2020Q2

REPORT INFORMATION
  Report Type: Spontaneous
  Country: US (occurrence: US)
  Receive Date: 20200409
  Receipt Date: 20200409
  Transmission Date: 20200713
  Serious: No
  Sender: FDA-Public Use
  Company Number: US-MYLANLABS-2020M1033265

PATIENT
  Sex: Female

DRUGS (1)
  1. NITROGLYCERIN TRANSDERMAL DELIVERY SYSTEM [Suspect]
     Active Substance: NITROGLYCERIN
     Indication: CHEST PAIN
     Dosage: UNK
     Route: 062

REACTIONS (4)
  - Application site erythema [Recovered/Resolved]
  - Application site irritation [Unknown]
  - Product adhesion issue [Unknown]
  - Application site reaction [Recovered/Resolved]
